FAERS Safety Report 21602934 (Version 1)
Quarter: 2022Q4

REPORT INFORMATION
  Report Type: Spontaneous
  Country: JP (occurrence: JP)
  Receive Date: 20221116
  Receipt Date: 20221116
  Transmission Date: 20230112
  Serious: Yes (Hospitalization)
  Sender: FDA-Public Use
  Company Number: JP-ASPEN-JPL2020JP010684AA

PATIENT
  Age: 84 Year
  Sex: Female

DRUGS (1)
  1. VALACYCLOVIR HYDROCHLORIDE [Suspect]
     Active Substance: VALACYCLOVIR HYDROCHLORIDE
     Indication: Facial paralysis
     Dosage: 3000 MG
     Route: 048

REACTIONS (3)
  - Acute kidney injury [Recovering/Resolving]
  - Toxic encephalopathy [Recovering/Resolving]
  - Product use in unapproved indication [Unknown]
